FAERS Safety Report 6297529-0 (Version None)
Quarter: 2009Q3

REPORT INFORMATION
  Report Type: 
  Country: None (occurrence: None)
  Receive Date: 20090804
  Receipt Date: 20090804
  Transmission Date: 20100115
  Serious: Yes (Other)
  Sender: FDA-Public Use
  Company Number: None

PATIENT
  Age: 55 Year
  Sex: Male
  Weight: 85.5 kg

DRUGS (1)
  1. RESTORIL [Suspect]
     Indication: INSOMNIA
     Dosage: 15 MG Q HS FOR THREE DOSE ORAL
     Route: 048
     Dates: start: 20081208, end: 20081210

REACTIONS (1)
  - INSOMNIA [None]
